FAERS Safety Report 5943018-X (Version None)
Quarter: 2008Q4

REPORT INFORMATION
  Report Type: 
  Country: None (occurrence: None)
  Receive Date: 20081106
  Receipt Date: 20081031
  Transmission Date: 20090506
  Serious: Yes (Hospitalization, Other)
  Sender: FDA-Public Use
  Company Number: DE-AVENTIS-200812407DE

PATIENT
  Age: 85 Year
  Sex: Male

DRUGS (7)
  1. CLEXANE [Suspect]
     Indication: THROMBOSIS PROPHYLAXIS
     Route: 058
     Dates: start: 20080303, end: 20080328
  2. CLEXANE [Suspect]
     Route: 058
     Dates: start: 20080303, end: 20080328
  3. ENALAPRIL MALEATE [Concomitant]
     Dosage: DOSE: 10-0-5
     Route: 048
  4. HYDROCHLOROTHIAZIDE [Concomitant]
     Route: 048
  5. IBUPROFEN TABLETS [Concomitant]
     Dosage: DOSE: 1-1-1
     Route: 048
  6. TRAMADOL HCL [Concomitant]
     Dosage: DOSE: 1-0-1
     Route: 048
  7. NOVALGIN                           /00039501/ [Concomitant]
     Dosage: DOSE: 3X20
     Route: 048

REACTIONS (2)
  - POST PROCEDURAL HAEMATOMA [None]
  - SEROMA [None]
